FAERS Safety Report 18430845 (Version 1)
Quarter: 2020Q4

REPORT INFORMATION
  Report Type: Spontaneous
  Country: US (occurrence: US)
  Receive Date: 20201026
  Receipt Date: 20201026
  Transmission Date: 20210114
  Serious: Yes (Other)
  Sender: FDA-Public Use
  Company Number: None

PATIENT
  Age: 60 Year
  Sex: Female
  Weight: 119.25 kg

DRUGS (1)
  1. PERRIGO ALBUTEROL SULFATE INHALATION AEROSOL - 200 METERED INHALATIONS [Suspect]
     Active Substance: ALBUTEROL SULFATE
     Indication: ASTHMA

REACTIONS (2)
  - Drug ineffective [None]
  - Drug delivery system malfunction [None]

NARRATIVE: CASE EVENT DATE: 20201026
